FAERS Safety Report 18135496 (Version 1)
Quarter: 2020Q3

REPORT INFORMATION
  Report Type: Spontaneous
  Country: US (occurrence: US)
  Receive Date: 20200811
  Receipt Date: 20200811
  Transmission Date: 20201103
  Serious: Yes (Hospitalization, Other)
  Sender: FDA-Public Use
  Company Number: US-SHIRE-US202024922

PATIENT
  Age: 67 Year
  Sex: Female
  Weight: 48.98 kg

DRUGS (1)
  1. GAMMAGARD LIQUID [Suspect]
     Active Substance: HUMAN IMMUNOGLOBULIN G
     Indication: PRIMARY IMMUNODEFICIENCY SYNDROME
     Dosage: 80 GRAM, EVERY 4 WK
     Route: 065

REACTIONS (4)
  - Pulmonary hypertension [Unknown]
  - Malaise [Unknown]
  - Headache [Recovered/Resolved]
  - Serratia infection [Recovered/Resolved]

NARRATIVE: CASE EVENT DATE: 2013
